FAERS Safety Report 5634969-4 (Version None)
Quarter: 2008Q1

REPORT INFORMATION
  Report Type: 
  Country: None (occurrence: None)
  Receive Date: 20080222
  Receipt Date: 20080218
  Transmission Date: 20080703
  Serious: Yes (Hospitalization)
  Sender: FDA-Public Use
  Company Number: PHEH2007US15868

PATIENT
  Age: 60 Year
  Sex: Male
  Weight: 101.13 kg

DRUGS (1)
  1. LAMISIL [Suspect]
     Indication: ONYCHOMYCOSIS
     Dosage: 250 MG, QD
     Route: 048
     Dates: start: 20070312, end: 20070612

REACTIONS (18)
  - ABDOMINAL PAIN [None]
  - C-REACTIVE PROTEIN INCREASED [None]
  - ECZEMA ASTEATOTIC [None]
  - ENDOCARDITIS [None]
  - HAEMOGLOBIN DECREASED [None]
  - HYPERSENSITIVITY [None]
  - LIVER FUNCTION TEST ABNORMAL [None]
  - MALAISE [None]
  - NAUSEA [None]
  - PAIN [None]
  - PITTING OEDEMA [None]
  - PYREXIA [None]
  - RASH [None]
  - RASH PAPULAR [None]
  - RED BLOOD CELL SEDIMENTATION RATE INCREASED [None]
  - SKIN REACTION [None]
  - VASCULITIS [None]
  - VIRAL INFECTION [None]
